FAERS Safety Report 9836816 (Version 1)
Quarter: 2014Q1

REPORT INFORMATION
  Report Type: Spontaneous
  Country: US (occurrence: US)
  Receive Date: 20140123
  Receipt Date: 20140123
  Transmission Date: 20141002
  Serious: Yes (Other)
  Sender: FDA-Public Use
  Company Number: US-PFIZER INC-2014014547

PATIENT
  Age: 64 Year
  Sex: Female

DRUGS (1)
  1. XELJANZ [Suspect]
     Dosage: 5 MG, 2X/DAY
     Route: 048
     Dates: start: 20131213, end: 20140113

REACTIONS (4)
  - Blood pressure increased [Unknown]
  - Headache [Unknown]
  - Dizziness [Unknown]
  - Drug ineffective [Unknown]
